FAERS Safety Report 4770962-1 (Version None)
Quarter: 2005Q3

REPORT INFORMATION
  Report Type: 
  Country: None (occurrence: None)
  Receive Date: 20050914
  Receipt Date: 20050830
  Transmission Date: 20060218
  Serious: Yes (Death)
  Sender: FDA-Public Use
  Company Number: FR_050807023

PATIENT
  Age: 82 Year
  Sex: Female

DRUGS (4)
  1. FORTEO [Suspect]
     Indication: OSTEOPOROSIS
     Dosage: 20 UG DAY
     Dates: start: 20041019
  2. REQUIP [Concomitant]
  3. SINEMET [Concomitant]
  4. OMEPRAZOLE [Concomitant]

REACTIONS (3)
  - BRONCHITIS [None]
  - MALNUTRITION [None]
  - SUPERINFECTION [None]
